FAERS Safety Report 19323457 (Version 1)
Quarter: 2021Q2

REPORT INFORMATION
  Report Type: Other
  Country: FR (occurrence: FR)
  Receive Date: 20210528
  Receipt Date: 20210528
  Transmission Date: 20210717
  Serious: Yes (Death, Other)
  Sender: FDA-Public Use
  Company Number: FR-ROCHE-2833799

PATIENT

DRUGS (6)
  1. DACLATASVIR. [Suspect]
     Active Substance: DACLATASVIR
     Indication: HEPATITIS C
     Route: 065
  2. VELPATASVIR [Suspect]
     Active Substance: VELPATASVIR
     Indication: HEPATITIS C
     Route: 065
  3. SIMEPREVIR [Suspect]
     Active Substance: SIMEPREVIR
     Indication: HEPATITIS C
     Route: 065
  4. LEDIPASVIR [Suspect]
     Active Substance: LEDIPASVIR
     Indication: HEPATITIS C
     Route: 065
  5. RIBAVIRIN. [Suspect]
     Active Substance: RIBAVIRIN
     Indication: HEPATITIS C
     Route: 065
  6. SOFOSBUVIR [Suspect]
     Active Substance: SOFOSBUVIR
     Indication: HEPATITIS C
     Route: 065

REACTIONS (16)
  - Asthenia [Unknown]
  - Insomnia [Unknown]
  - Affective disorder [Unknown]
  - Nausea [Unknown]
  - Haemoglobin decreased [Unknown]
  - Hepatorenal syndrome [Fatal]
  - Anaemia [Unknown]
  - Pain in extremity [Unknown]
  - Drug interaction [Unknown]
  - General physical condition abnormal [Unknown]
  - Pruritus [Unknown]
  - Irritability [Unknown]
  - Sleep disorder [Unknown]
  - Headache [Unknown]
  - Faeces discoloured [Unknown]
  - Drug ineffective [Unknown]
